FAERS Safety Report 18545933 (Version 1)
Quarter: 2020Q4

REPORT INFORMATION
  Report Type: Report from Study
  Country: IN (occurrence: IN)
  Receive Date: 20201125
  Receipt Date: 20201125
  Transmission Date: 20210114
  Serious: Yes (Other)
  Sender: FDA-Public Use
  Company Number: IN-MYLANLABS-2020M1097362

PATIENT
  Age: 18 Year
  Sex: Male

DRUGS (4)
  1. DAUNORUBICIN [Suspect]
     Active Substance: DAUNORUBICIN
     Indication: PRECURSOR T-LYMPHOBLASTIC LEUKAEMIA ACUTE
     Dosage: ONCE WEEKLY FOR 4 WEEKS DURING INDUCTION PHASE A
     Route: 042
  2. PREDNISOLONE. [Suspect]
     Active Substance: PREDNISOLONE
     Indication: PRECURSOR T-LYMPHOBLASTIC LEUKAEMIA ACUTE
     Dosage: FOR DAYS 1-28 DURING INDUCTION PHASE A
     Route: 048
  3. METHOTREXATE. [Suspect]
     Active Substance: METHOTREXATE
     Indication: PRECURSOR T-LYMPHOBLASTIC LEUKAEMIA ACUTE
     Dosage: 2 DOSES OF 12MG DURING INDUCTION PHASE A
     Route: 037
  4. VINCRISTINE [Suspect]
     Active Substance: VINCRISTINE
     Indication: PRECURSOR T-LYMPHOBLASTIC LEUKAEMIA ACUTE
     Dosage: ONCE WEEKLY FOR 4 WEEKS DURING INDUCTION PHASE A
     Route: 042

REACTIONS (4)
  - Lower motor neurone lesion [Recovered/Resolved]
  - Cerebral venous sinus thrombosis [Recovered/Resolved]
  - Facial paralysis [Recovered/Resolved]
  - Hemiplegia [Recovered/Resolved]
